FAERS Safety Report 13397986 (Version 1)
Quarter: 2017Q2

REPORT INFORMATION
  Report Type: Spontaneous
  Country: JP (occurrence: JP)
  Receive Date: 20170403
  Receipt Date: 20170403
  Transmission Date: 20170830
  Serious: Yes (Other)
  Sender: FDA-Public Use
  Company Number: JP-TEVA-2017-JP-001028J

PATIENT
  Age: 63 Year
  Sex: Female

DRUGS (13)
  1. CERCINE [Suspect]
     Active Substance: DIAZEPAM
     Indication: PRODUCT USED FOR UNKNOWN INDICATION
     Dosage: 5 MILLIGRAM DAILY;
     Route: 048
     Dates: start: 20090507
  2. ABILIFY [Suspect]
     Active Substance: ARIPIPRAZOLE
     Dosage: 12 MILLIGRAM DAILY;
     Route: 048
     Dates: start: 20070628, end: 20080709
  3. JUVELA [Concomitant]
     Active Substance: .ALPHA.-TOCOPHEROL\RETINOL
     Route: 065
     Dates: start: 20060216
  4. METHYCOBAL [Concomitant]
     Active Substance: METHYLCOBALAMIN
     Route: 065
     Dates: start: 20070615
  5. DESYREL [Suspect]
     Active Substance: TRAZODONE HYDROCHLORIDE
     Dosage: 50 MILLIGRAM DAILY;
     Route: 048
     Dates: start: 20130409, end: 2014
  6. ABILIFY [Suspect]
     Active Substance: ARIPIPRAZOLE
     Dosage: 6 MILLIGRAM DAILY;
     Route: 048
     Dates: start: 20120612, end: 20121001
  7. ZYPREXA [Suspect]
     Active Substance: OLANZAPINE
     Dosage: 2.5 MILLIGRAM DAILY;
     Route: 048
     Dates: start: 20130409, end: 20130923
  8. IMPROMEN [Suspect]
     Active Substance: BROMPERIDOL
     Dosage: 1 MILLIGRAM DAILY;
     Route: 048
     Dates: start: 20020611, end: 20050407
  9. REMERON [Concomitant]
     Active Substance: MIRTAZAPINE
     Route: 065
     Dates: start: 20140525, end: 20141014
  10. ABILIFY [Suspect]
     Active Substance: ARIPIPRAZOLE
     Dosage: 9 MILLIGRAM DAILY;
     Route: 048
     Dates: start: 20080710, end: 20120611
  11. ABILIFY [Suspect]
     Active Substance: ARIPIPRAZOLE
     Dosage: 3 MILLIGRAM DAILY;
     Route: 048
     Dates: start: 201410
  12. ABILIFY [Suspect]
     Active Substance: ARIPIPRAZOLE
     Indication: DEPRESSION
     Dosage: 12 MILLIGRAM DAILY;
     Route: 048
     Dates: start: 200702
  13. ABILIFY [Suspect]
     Active Substance: ARIPIPRAZOLE
     Dosage: 3 MILLIGRAM DAILY;
     Route: 048
     Dates: start: 20121002, end: 201403

REACTIONS (3)
  - Dystonia [None]
  - Dysphagia [Recovering/Resolving]
  - Dyskinesia [Not Recovered/Not Resolved]

NARRATIVE: CASE EVENT DATE: 201403
